FAERS Safety Report 6460585-0 (Version None)
Quarter: 2009Q4

REPORT INFORMATION
  Report Type: 
  Country: None (occurrence: None)
  Receive Date: 20091130
  Receipt Date: 20091119
  Transmission Date: 20100525
  Serious: Yes (Hospitalization)
  Sender: FDA-Public Use
  Company Number: SK-JNJFOC-20091105953

PATIENT
  Sex: Female
  Weight: 24 kg

DRUGS (3)
  1. CONCERTA [Suspect]
     Route: 048
     Dates: start: 20091014, end: 20091022
  2. CONCERTA [Suspect]
     Indication: ATTENTION DEFICIT/HYPERACTIVITY DISORDER
     Route: 048
     Dates: start: 20091014, end: 20091022
  3. PROTHAZIN [Concomitant]

REACTIONS (1)
  - HYPOMANIA [None]
